FAERS Safety Report 10284212 (Version 3)
Quarter: 2014Q3

REPORT INFORMATION
  Report Type: Spontaneous
  Country: US (occurrence: US)
  Receive Date: 20140708
  Receipt Date: 20140807
  Transmission Date: 20150326
  Serious: No
  Sender: FDA-Public Use
  Company Number: US-PFIZER INC-2014188278

PATIENT
  Age: 67 Year
  Sex: Female
  Weight: 72 kg

DRUGS (14)
  1. LOPRESSOR [Concomitant]
     Active Substance: METOPROLOL TARTRATE
     Dosage: 100 MG, 2X/DAY
  2. NORCO [Concomitant]
     Active Substance: ACETAMINOPHEN\HYDROCODONE BITARTRATE
     Dosage: [HYDROCODONE BITARTRATE 10MG]/[ACETAMINOPHEN 325MG], 1 DF, DAILY
  3. CALAN - SLOW RELEASE [Concomitant]
     Dosage: 240 MG, DAILY
  4. ARTHROTEC [Suspect]
     Active Substance: DICLOFENAC SODIUM\MISOPROSTOL
     Dosage: [MISOPROSTOL 200 MCG]/[DICLOFENAC SODIUM 50 MG], 1 DF, 2X/DAY
     Dates: end: 2014
  5. CARDURA [Concomitant]
     Active Substance: DOXAZOSIN MESYLATE
     Dosage: 3 MG, DAILY
  6. FLEXERIL [Concomitant]
     Active Substance: CYCLOBENZAPRINE HYDROCHLORIDE
     Dosage: 10 MG, DAILY
  7. SYNTHROID [Concomitant]
     Active Substance: LEVOTHYROXINE SODIUM
     Dosage: 25 UG, DAILY
  8. ARTHROTEC [Suspect]
     Active Substance: DICLOFENAC SODIUM\MISOPROSTOL
     Indication: OSTEOARTHRITIS
     Dosage: [MISOPROSTOL 200 MCG]/[DICLOFENAC SODIUM 75 MG], 1 DF, UNK
  9. ZINC [Suspect]
     Active Substance: ZINC\ZINC CHLORIDE
     Indication: SUPPLEMENTATION THERAPY
     Dosage: UNK
  10. ASPIRIN. [Concomitant]
     Active Substance: ASPIRIN
     Dosage: UNK, DAILY
  11. ACIPHEX [Concomitant]
     Active Substance: RABEPRAZOLE SODIUM
     Indication: GASTROOESOPHAGEAL REFLUX DISEASE
     Dosage: UNK
     Dates: end: 201404
  12. DEXILANT [Suspect]
     Active Substance: DEXLANSOPRAZOLE
     Indication: GASTROOESOPHAGEAL REFLUX DISEASE
     Dosage: 50 MG, UNK
     Dates: start: 201402, end: 2014
  13. TRAZODONE [Concomitant]
     Active Substance: TRAZODONE HYDROCHLORIDE
     Dosage: 100 MG, DAILY
  14. MAXZIDE [Concomitant]
     Active Substance: HYDROCHLOROTHIAZIDE\TRIAMTERENE
     Dosage: [TRIAMTERENE 75MG]/[HYDROCHLOROTHIAZIDE 50 MG], 0.5 DF, DAILY

REACTIONS (1)
  - Diarrhoea [Recovered/Resolved]

NARRATIVE: CASE EVENT DATE: 2014
